FAERS Safety Report 7200700-4 (Version None)
Quarter: 2010Q4

REPORT INFORMATION
  Report Type: 
  Country: None (occurrence: None)
  Receive Date: 20101228
  Receipt Date: 20101215
  Transmission Date: 20110411
  Serious: Yes (Other)
  Sender: FDA-Public Use
  Company Number: IN-MYLANLABS-2010S1023226

PATIENT
  Age: 50 Year
  Sex: Female

DRUGS (2)
  1. BUPIVACAINE HCL [Suspect]
     Indication: ANALGESIC THERAPY
     Dosage: 0.5% BUPIVACAINE, WITH 4ML OF 0.9% SODIUM CHLORIDE AND 1ML BUTORPHANOL
     Route: 008
  2. BUTORPHANOL TARTRATE [Suspect]
     Indication: ANALGESIC THERAPY
     Dosage: WITH 5ML OF 0.5% BUPIVACAINE AND 4ML OF 0.9% SODIUM CHLORIDE
     Route: 008

REACTIONS (2)
  - INCORRECT ROUTE OF DRUG ADMINISTRATION [None]
  - PARAPLEGIA [None]
